FAERS Safety Report 24314569 (Version 1)
Quarter: 2024Q3

REPORT INFORMATION
  Report Type: Spontaneous
  Country: US (occurrence: US)
  Receive Date: 20240913
  Receipt Date: 20240913
  Transmission Date: 20241017
  Serious: Yes (Other)
  Sender: JOHNSON AND JOHNSON
  Company Number: US-JNJFOC-20240920313

PATIENT

DRUGS (1)
  1. ZYRTEC [Suspect]
     Active Substance: CETIRIZINE HYDROCHLORIDE
     Indication: Product used for unknown indication
     Route: 065

REACTIONS (6)
  - Drug dependence [Unknown]
  - Withdrawal syndrome [Unknown]
  - Rebound effect [Unknown]
  - Skin disorder [Unknown]
  - Histamine abnormal [Unknown]
  - Hypersensitivity [Unknown]
